FAERS Safety Report 9588666 (Version 3)
Quarter: 2013Q4

REPORT INFORMATION
  Report Type: Report from Study
  Country: US (occurrence: US)
  Receive Date: 20131003
  Receipt Date: 20131014
  Transmission Date: 20140711
  Serious: Yes (Hospitalization)
  Sender: FDA-Public Use
  Company Number: US-ROCHE-1222123

PATIENT
  Age: 32 Year
  Sex: Female
  Weight: 148 kg

DRUGS (47)
  1. OMALIZUMAB [Suspect]
     Indication: ASTHMA
     Route: 058
     Dates: start: 201007
  2. OMALIZUMAB [Suspect]
     Route: 058
     Dates: start: 20121120
  3. OMALIZUMAB [Suspect]
     Route: 058
     Dates: start: 20121218
  4. OMALIZUMAB [Suspect]
     Route: 058
     Dates: start: 20130122
  5. OMALIZUMAB [Suspect]
     Route: 058
     Dates: start: 20130219
  6. OMALIZUMAB [Suspect]
     Route: 058
     Dates: start: 20130402
  7. OMALIZUMAB [Suspect]
     Route: 058
  8. OMALIZUMAB [Suspect]
     Route: 065
     Dates: start: 20121114
  9. OMALIZUMAB [Suspect]
     Route: 065
     Dates: start: 20130131
  10. OMALIZUMAB [Suspect]
     Route: 065
     Dates: start: 2013
  11. OMALIZUMAB [Suspect]
     Route: 065
     Dates: start: 20130514
  12. OMALIZUMAB [Suspect]
     Route: 065
     Dates: start: 20130423
  13. OMALIZUMAB [Suspect]
     Route: 065
     Dates: start: 20130507
  14. OMALIZUMAB [Suspect]
     Route: 065
     Dates: start: 20130521
  15. OMALIZUMAB [Suspect]
     Dosage: DATE OF LAST DOSE PRIOR TO SAE: 21/MAY/2013 DOSE : 300 MG
     Route: 065
     Dates: start: 20130423
  16. OMALIZUMAB [Suspect]
     Route: 065
     Dates: start: 20130604
  17. OMALIZUMAB [Suspect]
     Route: 065
     Dates: start: 20130618
  18. OMALIZUMAB [Suspect]
     Route: 065
     Dates: start: 20130716
  19. OMALIZUMAB [Suspect]
     Route: 065
     Dates: start: 20130603
  20. OMALIZUMAB [Suspect]
     Route: 065
     Dates: start: 20130702
  21. OMALIZUMAB [Suspect]
     Route: 065
     Dates: start: 20130802
  22. OMALIZUMAB [Suspect]
     Route: 065
     Dates: start: 20130730
  23. OMALIZUMAB [Suspect]
     Route: 058
     Dates: start: 20130913
  24. OMALIZUMAB [Suspect]
     Route: 058
     Dates: start: 20130927
  25. RANITIDINE [Concomitant]
     Indication: NAUSEA
  26. RANITIDINE [Concomitant]
     Indication: DYSPEPSIA
  27. NOVOLOG [Concomitant]
     Indication: TYPE 2 DIABETES MELLITUS
  28. NPH INSULIN [Concomitant]
     Indication: TYPE 2 DIABETES MELLITUS
  29. ADVAIR [Concomitant]
     Indication: ASTHMA
  30. SINGULAIR [Concomitant]
     Indication: ASTHMA
  31. PREDNISONE [Concomitant]
     Indication: ASTHMA
  32. NISOLDIPINE [Concomitant]
     Indication: HYPERTENSION
  33. FLONASE [Concomitant]
     Indication: HYPERSENSITIVITY
  34. IPRATROPIUM [Concomitant]
     Indication: ASTHMA
  35. ALBUTEROL [Concomitant]
     Indication: ASTHMA
  36. ALBUTEROL INHALER [Concomitant]
     Indication: ASTHMA
  37. TYLENOL [Concomitant]
     Indication: PAIN
  38. SOLU-MEDROL [Concomitant]
     Indication: ASTHMA
  39. MUCINEX DM [Concomitant]
     Indication: COUGH
  40. METOCLOPRAMIDE [Concomitant]
     Indication: NAUSEA
  41. METOCLOPRAMIDE [Concomitant]
     Indication: MIGRAINE
  42. CETRIZINE [Concomitant]
     Indication: HYPERSENSITIVITY
  43. BUSPAR [Concomitant]
     Indication: ANXIETY
  44. PROZAC [Concomitant]
     Indication: DEPRESSION
  45. GABAPENTIN [Concomitant]
     Indication: DIABETIC NEUROPATHY
  46. VICODIN [Concomitant]
     Indication: DIABETIC NEUROPATHY
  47. LORAZEPAM [Concomitant]
     Indication: ANXIETY

REACTIONS (4)
  - Diabetic neuropathy [Not Recovered/Not Resolved]
  - Type 2 diabetes mellitus [Recovered/Resolved]
  - Migraine [Not Recovered/Not Resolved]
  - Exposure during pregnancy [Unknown]
